FAERS Safety Report 4907293-2 (Version None)
Quarter: 2006Q1

REPORT INFORMATION
  Report Type: 
  Country: None (occurrence: None)
  Receive Date: 20060208
  Receipt Date: 20060208
  Transmission Date: 20060701
  Serious: Yes (Hospitalization)
  Sender: FDA-Public Use
  Company Number: None

PATIENT
  Age: 58 Year
  Sex: Male
  Weight: 92.3 kg

DRUGS (14)
  1. NAPROXEN [Suspect]
     Indication: BACK PAIN
     Dosage: 500 MG 1 TAB BID PO
     Route: 048
     Dates: start: 20031201, end: 20051001
  2. ALLOPURINOL [Concomitant]
  3. ALOH/MGOH/SIMETH EXTRA [Concomitant]
  4. ATENOLOL [Concomitant]
  5. GLYUBURIDE [Concomitant]
  6. LISINOPRIL [Concomitant]
  7. METFORMIN [Concomitant]
  8. FELODIPINE [Concomitant]
  9. HYDROCHLOROTHIAZIDE [Concomitant]
  10. ROSIGLITAZONE [Concomitant]
  11. SIMVASTATIN [Concomitant]
  12. APAP TAB [Concomitant]
  13. TRAMADOL [Concomitant]
  14. CYCLOBENZAPRINE HCL [Concomitant]

REACTIONS (10)
  - ANAEMIA [None]
  - ASTHENIA [None]
  - BLOOD IRON DECREASED [None]
  - CONSTIPATION [None]
  - DECREASED APPETITE [None]
  - DUODENAL ULCER [None]
  - HAEMATOCHEZIA [None]
  - MEAN CELL VOLUME DECREASED [None]
  - UPPER GASTROINTESTINAL HAEMORRHAGE [None]
  - WEIGHT DECREASED [None]
